FAERS Safety Report 4785964-9 (Version None)
Quarter: 2005Q4

REPORT INFORMATION
  Report Type: 
  Country: None (occurrence: None)
  Receive Date: 20051003
  Receipt Date: 20050804
  Transmission Date: 20060501
  Serious: Yes (Hospitalization, Other)
  Sender: FDA-Public Use
  Company Number: PHEH2005US08747

PATIENT
  Age: 65 Year
  Sex: Female

DRUGS (1)
  1. ZOMETA [Suspect]
     Indication: METASTASES TO BONE
     Dosage: 4 MG, Q MONTH
     Route: 042
     Dates: start: 20020401, end: 20050301

REACTIONS (12)
  - BONE DEBRIDEMENT [None]
  - BONE DISORDER [None]
  - BONE LESION [None]
  - EXOSTOSIS [None]
  - FAILURE TO ANASTOMOSE [None]
  - FIBROSIS [None]
  - LYMPHADENOPATHY [None]
  - ORAL SURGERY [None]
  - OSTEOMYELITIS [None]
  - OSTEONECROSIS [None]
  - PAIN IN JAW [None]
  - SWELLING [None]
